FAERS Safety Report 12669569 (Version 2)
Quarter: 2016Q3

REPORT INFORMATION
  Report Type: Spontaneous
  Country: JP (occurrence: JP)
  Receive Date: 20160819
  Receipt Date: 20160830
  Transmission Date: 20161109
  Serious: Yes (Other)
  Sender: FDA-Public Use
  Company Number: JP-BAYER-2016-157211

PATIENT
  Sex: Male

DRUGS (2)
  1. BILTRICIDE [Suspect]
     Active Substance: PRAZIQUANTEL
     Indication: DIPHYLLOBOTHRIASIS
     Dosage: UNK
     Route: 048
  2. LAXOBERON [Concomitant]
     Active Substance: SODIUM PICOSULFATE
     Indication: LAXATIVE SUPPORTIVE CARE
     Dosage: DAILY DOSE 5 ML
     Route: 048

REACTIONS (2)
  - Off label use [None]
  - Constipation [None]
